FAERS Safety Report 5200967-8 (Version None)
Quarter: 2007Q1

REPORT INFORMATION
  Report Type: 
  Country: None (occurrence: None)
  Receive Date: 20070103
  Receipt Date: 20061208
  Transmission Date: 20070707
  Serious: Yes (Life-Threatening, Hospitalization)
  Sender: FDA-Public Use
  Company Number: FSC_0018_2006

PATIENT
  Age: 69 Year
  Sex: Female

DRUGS (4)
  1. IKAPRESS [Suspect]
     Dosage: DF PO
     Route: 048
  2. ENALEDEX [Suspect]
     Indication: HYPERTENSION
     Dosage: DF
  3. METOPROLOL SUCCINATE [Suspect]
     Indication: HYPERTENSION
     Dosage: DF
  4. DISOTHIAZIDE [Concomitant]

REACTIONS (14)
  - BLOOD BICARBONATE DECREASED [None]
  - BLOOD CREATININE INCREASED [None]
  - BLOOD GLUCOSE INCREASED [None]
  - BLOOD PRESSURE SYSTOLIC DECREASED [None]
  - BRADYCARDIA [None]
  - DRUG TOXICITY [None]
  - HYPOTENSION [None]
  - LETHARGY [None]
  - OXYGEN SATURATION DECREASED [None]
  - PCO2 DECREASED [None]
  - PLEURAL EFFUSION [None]
  - PO2 DECREASED [None]
  - PULMONARY CONGESTION [None]
  - SYNCOPE [None]
